FAERS Safety Report 11381134 (Version 1)
Quarter: 2015Q3

REPORT INFORMATION
  Report Type: Spontaneous
  Country: US (occurrence: None)
  Receive Date: 20150813
  Receipt Date: 20150813
  Transmission Date: 20151125
  Serious: Yes (Other)
  Sender: FDA-Public Use
  Company Number: None

PATIENT
  Sex: Male

DRUGS (2)
  1. AXONA [Suspect]
     Active Substance: TRICAPRYLIN
     Dates: start: 2015
  2. COUMADIN [Suspect]
     Active Substance: WARFARIN SODIUM
     Dates: start: 201507

REACTIONS (1)
  - International normalised ratio decreased [None]

NARRATIVE: CASE EVENT DATE: 201507
